FAERS Safety Report 10357304 (Version 1)
Quarter: 2014Q3

REPORT INFORMATION
  Report Type: Spontaneous
  Country: US (occurrence: None)
  Receive Date: 20140730
  Receipt Date: 20140730
  Transmission Date: 20150326
  Serious: Yes (Hospitalization, Disabling)
  Sender: FDA-Public Use
  Company Number: None

PATIENT
  Age: 83 Year
  Sex: Female
  Weight: 56.7 kg

DRUGS (10)
  1. NORVASC [Concomitant]
     Active Substance: AMLODIPINE BESYLATE
  2. ASPIRIN. [Concomitant]
     Active Substance: ASPIRIN
  3. ATENOLOL. [Concomitant]
     Active Substance: ATENOLOL
  4. ATORVASTATIN [Concomitant]
     Active Substance: ATORVASTATIN
  5. LEVOTHYROXINE [Concomitant]
     Active Substance: LEVOTHYROXINE
  6. SILVER SULFADIAZINE 1% CREAM (NDC: 67877-0124-50 (COMPANY: ASCEND LABORATORIES) [Suspect]
     Active Substance: SILVER SULFADIAZINE
     Indication: BURNS SECOND DEGREE
     Dates: start: 20140616, end: 20140620
  7. VITAMIN D [Concomitant]
     Active Substance: CHOLECALCIFEROL
  8. CALCIUM [Concomitant]
     Active Substance: CALCIUM
  9. SULFAMETHOXAZOLE-TMP DS TABLET 800-160 MG #20 1 TABLET TWICE A DAY AMNEAL [Suspect]
     Active Substance: SULFAMETHOXAZOLE\TRIMETHOPRIM
     Indication: BURNS SECOND DEGREE
     Route: 048
     Dates: start: 20140616, end: 20140620
  10. NEXIUM [Concomitant]
     Active Substance: ESOMEPRAZOLE MAGNESIUM

REACTIONS (11)
  - Tremor [None]
  - Asthenia [None]
  - Somnolence [None]
  - Balance disorder [None]
  - Headache [None]
  - Contusion [None]
  - Oral candidiasis [None]
  - Drug hypersensitivity [None]
  - Night sweats [None]
  - Decreased appetite [None]
  - Dysarthria [None]

NARRATIVE: CASE EVENT DATE: 20140619
